FAERS Safety Report 17654235 (Version 1)
Quarter: 2020Q2

REPORT INFORMATION
  Report Type: Spontaneous
  Country: MX (occurrence: MX)
  Receive Date: 20200410
  Receipt Date: 20200410
  Transmission Date: 20200713
  Serious: Yes (Hospitalization, Other)
  Sender: FDA-Public Use
  Company Number: MX-VISTAPHARM, INC.-VER202002-000437

PATIENT
  Age: 17 Year
  Sex: Male

DRUGS (2)
  1. PHENYTOIN. [Suspect]
     Active Substance: PHENYTOIN
     Indication: HERPES ZOSTER MENINGOENCEPHALITIS
     Dosage: UNKNOWN
  2. ACYCLOVIR. [Suspect]
     Active Substance: ACYCLOVIR
     Indication: HERPES ZOSTER MENINGOENCEPHALITIS
     Dosage: UNKNOWN

REACTIONS (3)
  - Haemophagocytic lymphohistiocytosis [Unknown]
  - Hepatic failure [Recovered/Resolved]
  - Drug reaction with eosinophilia and systemic symptoms [Unknown]
